FAERS Safety Report 23113122 (Version 1)
Quarter: 2023Q4

REPORT INFORMATION
  Report Type: Spontaneous
  Country: US (occurrence: US)
  Receive Date: 20231027
  Receipt Date: 20231027
  Transmission Date: 20240109
  Serious: Yes (Other)
  Sender: FDA-Public Use
  Company Number: US-AMGEN-USASP2023190770

PATIENT
  Age: 74 Year
  Sex: Female

DRUGS (4)
  1. RITUXIMAB [Suspect]
     Active Substance: RITUXIMAB
     Indication: Graft versus host disease
     Dosage: 1000 MILLIGRAMX2DAYS
     Route: 065
  2. METHYLPREDNISOLONE [Concomitant]
     Active Substance: METHYLPREDNISOLONE
     Dosage: 1000 MILLIGRAMX3DAYS
  3. METHYLPREDNISOLONE [Concomitant]
     Active Substance: METHYLPREDNISOLONE
     Dosage: 1000 MILLIGRAMX5DAYS
  4. Immunoglobulin [Concomitant]
     Dosage: UNK
     Route: 042

REACTIONS (7)
  - Graft versus host disease in eye [Recovering/Resolving]
  - Graft versus host disease oral [Recovering/Resolving]
  - Graft versus host disease in skin [Recovering/Resolving]
  - Joint stiffness [Recovering/Resolving]
  - Ecchymosis [Recovering/Resolving]
  - Drug ineffective for unapproved indication [Unknown]
  - Off label use [Unknown]
